FAERS Safety Report 21853093 (Version 2)
Quarter: 2023Q2

REPORT INFORMATION
  Report Type: Spontaneous
  Country: US (occurrence: US)
  Receive Date: 20230112
  Receipt Date: 20230405
  Transmission Date: 20230721
  Serious: No
  Sender: FDA-Public Use
  Company Number: US-BRISTOL-MYERS SQUIBB COMPANY-2023-004365

PATIENT
  Age: 79 Year
  Sex: Female
  Weight: 77.56 kg

DRUGS (1)
  1. POMALYST [Suspect]
     Active Substance: POMALIDOMIDE
     Indication: Plasma cell myeloma
     Dosage: 3W, 1W OFF
     Route: 048
     Dates: start: 20220501

REACTIONS (5)
  - Back pain [Unknown]
  - Arthritis [Unknown]
  - Intervertebral disc protrusion [Unknown]
  - Bone pain [Unknown]
  - Oral pain [Unknown]
